FAERS Safety Report 11394926 (Version 2)
Quarter: 2015Q3

REPORT INFORMATION
  Report Type: Report from Study
  Country: DE (occurrence: DE)
  Receive Date: 20150819
  Receipt Date: 20150909
  Transmission Date: 20151125
  Serious: Yes (Hospitalization)
  Sender: FDA-Public Use
  Company Number: DE-ABBVIE-15P-062-1445313-00

PATIENT
  Age: 80 Year
  Sex: Male

DRUGS (1)
  1. DUODOPA [Suspect]
     Active Substance: CARBIDOPA\LEVODOPA
     Indication: PARKINSON^S DISEASE
     Dosage: MD 8.0 ML, CRD 4.0 ML/HR, ED 1.5 ML
     Route: 050
     Dates: start: 20120130

REACTIONS (4)
  - Stoma site discharge [Unknown]
  - Purulent discharge [Unknown]
  - Device dislocation [Recovered/Resolved]
  - Stoma site erythema [Unknown]

NARRATIVE: CASE EVENT DATE: 201508
